FAERS Safety Report 8099803-4 (Version None)
Quarter: 2012Q1

REPORT INFORMATION
  Report Type: 
  Country: None (occurrence: None)
  Receive Date: 20120129
  Receipt Date: 20111009
  Transmission Date: 20120608
  Serious: No
  Sender: FDA-Public Use
  Company Number: US-ABBOTT-11P-163-0862414-00

PATIENT
  Age: 44 Year
  Sex: Female

DRUGS (5)
  1. FOLIC ACID [Concomitant]
     Indication: SUPPLEMENTATION THERAPY
     Dosage: DAILY
  2. METHOTREXATE [Concomitant]
     Indication: RHEUMATOID ARTHRITIS
     Dosage: WEEKLY
     Route: 050
  3. ULTRAM [Concomitant]
     Indication: PAIN
  4. PRILOSEC [Concomitant]
     Indication: GASTRIC PH DECREASED
     Dosage: DAILY
  5. HUMIRA [Suspect]
     Indication: RHEUMATOID ARTHRITIS
     Dates: start: 20110901

REACTIONS (4)
  - OROPHARYNGEAL PAIN [None]
  - SINUSITIS [None]
  - PHARYNGITIS STREPTOCOCCAL [None]
  - HEADACHE [None]
